FAERS Safety Report 13850421 (Version 20)
Quarter: 2020Q1

REPORT INFORMATION
  Report Type: Report from Study
  Country: None (occurrence: NL)
  Receive Date: 20170809
  Receipt Date: 20200329
  Transmission Date: 20200409
  Serious: Yes (Hospitalization, Other)
  Sender: FDA-Public Use
  Company Number: NL-ABBVIE-17K-114-2066408-00

PATIENT
  Age: 78 Year
  Sex: Female
  Weight: 50 kg

DRUGS (19)
  1. DUODOPA [Suspect]
     Active Substance: CARBIDOPA\LEVODOPA
     Dosage: EXTRA DOSE REDUCED TO 0.5 ML
     Route: 050
     Dates: start: 2017, end: 2017
  2. DUODOPA [Suspect]
     Active Substance: CARBIDOPA\LEVODOPA
     Dosage: MD 5.9 CD 2.9 ED 1.5
     Route: 050
     Dates: start: 20190912, end: 20190912
  3. DUODOPA [Suspect]
     Active Substance: CARBIDOPA\LEVODOPA
     Indication: PARKINSON^S DISEASE
     Dosage: MD: 5.0, CD: 2.1, ED: 1.5
     Route: 050
     Dates: start: 20170731, end: 2017
  4. MOVICOLON [Concomitant]
     Active Substance: POLYETHYLENE GLYCOL 3350\POTASSIUM CHLORIDE\SODIUM BICARBONATE\SODIUM CHLORIDE
     Indication: CONSTIPATION
  5. DUODOPA [Suspect]
     Active Substance: CARBIDOPA\LEVODOPA
     Dosage: MD 5.4 CD 3.1 ED 1.5
     Route: 050
  6. DUODOPA [Suspect]
     Active Substance: CARBIDOPA\LEVODOPA
     Dosage: MD 5.4+0.5, CD 3.0, ED 1.5
     Route: 050
     Dates: end: 20190912
  7. PANTOPRAZOLE [Concomitant]
     Active Substance: PANTOPRAZOLE
     Indication: PRODUCT USED FOR UNKNOWN INDICATION
  8. RIVASTIGMIN [Concomitant]
     Active Substance: RIVASTIGMINE
     Indication: PARKINSON^S DISEASE
     Route: 062
     Dates: start: 20200206
  9. MOVICOLON [Concomitant]
     Active Substance: POLYETHYLENE GLYCOL 3350\POTASSIUM CHLORIDE\SODIUM BICARBONATE\SODIUM CHLORIDE
     Indication: ABNORMAL FAECES
  10. DUODOPA [Suspect]
     Active Substance: CARBIDOPA\LEVODOPA
     Dosage: MD 5, CD 2.5, ED 1.5
     Route: 050
     Dates: start: 2017
  11. DUODOPA [Suspect]
     Active Substance: CARBIDOPA\LEVODOPA
     Dosage: EXTRA DOSE REDUCED TO 1 ML
     Route: 050
     Dates: start: 2017, end: 2017
  12. CLOZAPINE. [Concomitant]
     Active Substance: CLOZAPINE
     Indication: PRODUCT USED FOR UNKNOWN INDICATION
  13. MADOPAR [Concomitant]
     Active Substance: BENSERAZIDE HYDROCHLORIDE\LEVODOPA
     Indication: PRODUCT USED FOR UNKNOWN INDICATION
  14. LACTULOSUM [Concomitant]
     Indication: PARKINSON^S DISEASE
     Route: 048
     Dates: start: 20200101
  15. DUODOPA [Suspect]
     Active Substance: CARBIDOPA\LEVODOPA
     Dosage: MD 5.4, CD 3, ED 1.3
     Route: 050
     Dates: start: 2017
  16. DUODOPA [Suspect]
     Active Substance: CARBIDOPA\LEVODOPA
     Dosage: MD: 5.9, CD: 3.0, ED: 1.5
     Route: 050
     Dates: start: 20190912, end: 20190912
  17. AUGMENTIN [Concomitant]
     Active Substance: AMOXICILLIN\CLAVULANATE POTASSIUM
     Indication: PRODUCT USED FOR UNKNOWN INDICATION
  18. SYMMETREL [Concomitant]
     Active Substance: AMANTADINE HYDROCHLORIDE
     Indication: PRODUCT USED FOR UNKNOWN INDICATION
  19. LEVODOPA/CARBIDOPA [Concomitant]
     Active Substance: CARBIDOPA\LEVODOPA
     Indication: PARKINSON^S DISEASE

REACTIONS (73)
  - Depressed mood [Recovered/Resolved]
  - Oedema peripheral [Not Recovered/Not Resolved]
  - Therapeutic product effect variable [Not Recovered/Not Resolved]
  - Urinary tract infection [Recovered/Resolved]
  - Depressed mood [Not Recovered/Not Resolved]
  - Posture abnormal [Not Recovered/Not Resolved]
  - Delusion [Not Recovered/Not Resolved]
  - Stoma site erythema [Recovered/Resolved]
  - Stoma site haemorrhage [Recovered/Resolved]
  - Stoma site pain [Not Recovered/Not Resolved]
  - Inflammation [Recovered/Resolved]
  - Device issue [Not Recovered/Not Resolved]
  - Tremor [Not Recovered/Not Resolved]
  - Nightmare [Not Recovered/Not Resolved]
  - Drug level decreased [Not Recovered/Not Resolved]
  - Confusional state [Not Recovered/Not Resolved]
  - Therapeutic product effect incomplete [Recovered/Resolved]
  - Abnormal faeces [Not Recovered/Not Resolved]
  - Gastrointestinal complication associated with device [Recovered/Resolved]
  - Muscle rigidity [Not Recovered/Not Resolved]
  - On and off phenomenon [Not Recovered/Not Resolved]
  - Unevaluable event [Recovered/Resolved]
  - Mood swings [Not Recovered/Not Resolved]
  - Product dose omission [Not Recovered/Not Resolved]
  - Decreased appetite [Unknown]
  - Stoma site pain [Recovered/Resolved]
  - Fibroma [Not Recovered/Not Resolved]
  - Cardiac failure [Unknown]
  - Hallucination [Recovered/Resolved]
  - Memory impairment [Not Recovered/Not Resolved]
  - Mobility decreased [Not Recovered/Not Resolved]
  - Hypogeusia [Unknown]
  - Device breakage [Unknown]
  - Therapeutic response shortened [Not Recovered/Not Resolved]
  - Hypokinesia [Recovering/Resolving]
  - Constipation [Recovered/Resolved]
  - Stoma site discharge [Not Recovered/Not Resolved]
  - Cognitive disorder [Not Recovered/Not Resolved]
  - Abdominal wall wound [Recovering/Resolving]
  - Fibroma [Recovered/Resolved]
  - Complication associated with device [Unknown]
  - Stoma site inflammation [Unknown]
  - Musculoskeletal pain [Unknown]
  - Abdominal pain [Unknown]
  - Bradykinesia [Not Recovered/Not Resolved]
  - Gait disturbance [Not Recovered/Not Resolved]
  - Hypertension [Not Recovered/Not Resolved]
  - Drug ineffective [Not Recovered/Not Resolved]
  - Constipation [Not Recovered/Not Resolved]
  - Hyperkinesia [Not Recovered/Not Resolved]
  - Stoma site irritation [Not Recovered/Not Resolved]
  - Back pain [Unknown]
  - Dyskinesia [Recovering/Resolving]
  - Gastrointestinal disorder [Recovering/Resolving]
  - Device leakage [Unknown]
  - Flatulence [Recovered/Resolved]
  - Hallucination, visual [Not Recovered/Not Resolved]
  - Somnolence [Not Recovered/Not Resolved]
  - Stoma site reaction [Not Recovered/Not Resolved]
  - On and off phenomenon [Recovered/Resolved]
  - Stoma site erythema [Not Recovered/Not Resolved]
  - Gastric perforation [Recovered/Resolved]
  - Freezing phenomenon [Not Recovered/Not Resolved]
  - Anal incontinence [Not Recovered/Not Resolved]
  - Dependent personality disorder [Not Recovered/Not Resolved]
  - Dysstasia [Recovering/Resolving]
  - Nocturia [Not Recovered/Not Resolved]
  - Parkinsonian gait [Not Recovered/Not Resolved]
  - Emotional disorder [Not Recovered/Not Resolved]
  - Delirium [Not Recovered/Not Resolved]
  - Therapeutic product effect decreased [Not Recovered/Not Resolved]
  - Orthostatic hypotension [Not Recovered/Not Resolved]
  - Prolapse [Not Recovered/Not Resolved]

NARRATIVE: CASE EVENT DATE: 2017
